FAERS Safety Report 21562164 (Version 1)
Quarter: 2022Q4

REPORT INFORMATION
  Report Type: Spontaneous
  Country: US (occurrence: None)
  Receive Date: 20221106
  Receipt Date: 20221106
  Transmission Date: 20230113
  Serious: Yes (Death)
  Sender: FDA-Public Use
  Company Number: None

PATIENT
  Age: 57 Year
  Sex: Female
  Weight: 135.17 kg

DRUGS (17)
  1. EXEMESTANE [Suspect]
     Active Substance: EXEMESTANE
     Indication: Breast cancer
     Dosage: FREQUENCY : DAILY;?
     Route: 048
     Dates: start: 20220713
  2. EVEROLIMUS [Suspect]
     Active Substance: EVEROLIMUS
     Indication: Breast cancer
     Dosage: FREQUENCY : DAILY;?
     Route: 048
     Dates: start: 20220713
  3. TYLENOL [Concomitant]
     Active Substance: ACETAMINOPHEN
  4. AMLODIPINE [Concomitant]
     Active Substance: AMLODIPINE BESYLATE
  5. ATORVASTATIN [Concomitant]
     Active Substance: ATORVASTATIN
  6. CARVEDILOL [Concomitant]
     Active Substance: CARVEDILOL
  7. CETIRIZINE [Concomitant]
     Active Substance: CETIRIZINE HYDROCHLORIDE
  8. FULVESTRANT [Concomitant]
     Active Substance: FULVESTRANT
  9. FUROSEMIDE [Concomitant]
     Active Substance: FUROSEMIDE
  10. VICODIN [Concomitant]
     Active Substance: ACETAMINOPHEN\HYDROCODONE BITARTRATE
  11. HYDROCORTISONE [Concomitant]
     Active Substance: HYDROCORTISONE
  12. LISINOPRIL [Concomitant]
     Active Substance: LISINOPRIL
  13. LOPERAMIDE [Concomitant]
     Active Substance: LOPERAMIDE
  14. ONDANSETRON [Concomitant]
     Active Substance: ONDANSETRON
  15. PANTOPRAZOLE [Concomitant]
     Active Substance: PANTOPRAZOLE
  16. PILOCARPINE [Concomitant]
     Active Substance: PILOCARPINE
  17. TAO [Concomitant]
     Active Substance: TROLEANDOMYCIN

REACTIONS (1)
  - Death [None]

NARRATIVE: CASE EVENT DATE: 20221020
